FAERS Safety Report 7179303-6 (Version None)
Quarter: 2010Q4

REPORT INFORMATION
  Report Type: 
  Country: None (occurrence: None)
  Receive Date: 20101221
  Receipt Date: 20101208
  Transmission Date: 20110411
  Serious: Yes (Hospitalization)
  Sender: FDA-Public Use
  Company Number: PHHY2010JP83985

PATIENT
  Age: 58 Year
  Sex: Male

DRUGS (3)
  1. TEGRETOL [Suspect]
     Indication: EPILEPSY
     Route: 048
  2. PHENYTOIN [Concomitant]
     Indication: EPILEPSY
     Route: 048
  3. PHENOBARBITAL [Concomitant]
     Indication: EPILEPSY
     Route: 048

REACTIONS (4)
  - DIZZINESS [None]
  - DYSLALIA [None]
  - HEADACHE [None]
  - SYNCOPE [None]
